FAERS Safety Report 18452606 (Version 1)
Quarter: 2020Q4

REPORT INFORMATION
  Report Type: Spontaneous
  Country: JP (occurrence: JP)
  Receive Date: 20201102
  Receipt Date: 20201102
  Transmission Date: 20210114
  Serious: Yes (Death)
  Sender: FDA-Public Use
  Company Number: JP-PFIZER INC-2020420239

PATIENT
  Age: 5 Decade

DRUGS (3)
  1. ZOLEDRONIC ACID [Concomitant]
     Active Substance: ZOLEDRONIC ACID
  2. IBRANCE [Suspect]
     Active Substance: PALBOCICLIB
     Indication: BREAST CANCER
     Dosage: 125 MG (MAINTENANCE DOSE AS 4TH LINE THERAPY)
  3. FULVESTRANT. [Concomitant]
     Active Substance: FULVESTRANT

REACTIONS (3)
  - Death [Fatal]
  - Neutrophil count decreased [Unknown]
  - Alopecia [Unknown]
